FAERS Safety Report 4525926-X (Version None)
Quarter: 2004Q4

REPORT INFORMATION
  Report Type: 
  Country: None (occurrence: None)
  Receive Date: 20041124
  Receipt Date: 20040701
  Transmission Date: 20050328
  Serious: Yes (Hospitalization)
  Sender: FDA-Public Use
  Company Number: 2004025910

PATIENT
  Sex: Female

DRUGS (1)
  1. TIKOSYN [Suspect]
     Indication: ATRIAL FIBRILLATION
     Dosage: ORAL
     Route: 048
     Dates: start: 20040322

REACTIONS (4)
  - ATRIAL FIBRILLATION [None]
  - HEART RATE INCREASED [None]
  - INSOMNIA [None]
  - PALPITATIONS [None]
